APPROVED DRUG PRODUCT: SODIUM IODIDE I 131
Active Ingredient: SODIUM IODIDE I-131
Strength: 0.8-100mCi
Dosage Form/Route: CAPSULE;ORAL
Application: N016517 | Product #001
Applicant: CURIUM US LLC
Approved: Approved Prior to Jan 1, 1982 | RLD: Yes | RS: No | Type: DISCN